FAERS Safety Report 4950425-0 (Version None)
Quarter: 2006Q1

REPORT INFORMATION
  Report Type: 
  Country: None (occurrence: None)
  Receive Date: 20060316
  Receipt Date: 20060307
  Transmission Date: 20060701
  Serious: Yes (Disabling, Other)
  Sender: FDA-Public Use
  Company Number: 2006-01-0406

PATIENT
  Age: 70 Year
  Sex: Male

DRUGS (2)
  1. INTRON A [Suspect]
     Indication: METASTATIC RENAL CELL CARCINOMA
     Dosage: 10 MU TIW SUBCUTANEOUS
     Route: 058
     Dates: end: 20051130
  2. FLUOXETINE HCL [Concomitant]

REACTIONS (13)
  - APATHY [None]
  - APRAXIA [None]
  - BALANCE DISORDER [None]
  - BLOOD CALCIUM INCREASED [None]
  - CEREBELLAR ATROPHY [None]
  - CEREBRAL ATROPHY [None]
  - CEREBRAL VENTRICLE DILATATION [None]
  - CONFUSIONAL STATE [None]
  - COORDINATION ABNORMAL [None]
  - DEPRESSION [None]
  - HYPOKINESIA [None]
  - NEUROTOXICITY [None]
  - WEIGHT DECREASED [None]
